FAERS Safety Report 5656044-5 (Version None)
Quarter: 2008Q1

REPORT INFORMATION
  Report Type: 
  Country: None (occurrence: None)
  Receive Date: 20080307
  Receipt Date: 20080226
  Transmission Date: 20080703
  Serious: Yes (Other)
  Sender: FDA-Public Use
  Company Number: US-PFIZER INC-2008018995

PATIENT
  Sex: Female
  Weight: 74.8 kg

DRUGS (3)
  1. CELEBREX [Suspect]
     Indication: OSTEOPOROSIS
     Dates: start: 20050401, end: 20050401
  2. VITAMIN B-12 [Concomitant]
  3. ALL OTHER THERAPEUTIC PRODUCTS [Concomitant]

REACTIONS (8)
  - CHOLECYSTITIS INFECTIVE [None]
  - DIABETES MELLITUS [None]
  - HEPATIC INFECTION [None]
  - LIP BLISTER [None]
  - NEUROPATHY PERIPHERAL [None]
  - PERNICIOUS ANAEMIA [None]
  - SKIN DISCOLOURATION [None]
  - SWELLING FACE [None]
